FAERS Safety Report 8512844-5 (Version None)
Quarter: 2012Q3

REPORT INFORMATION
  Report Type: 
  Country: None (occurrence: None)
  Receive Date: 20120716
  Receipt Date: 20120709
  Transmission Date: 20120928
  Serious: Yes (Hospitalization)
  Sender: FDA-Public Use
  Company Number: FR-B.I. PHARMACEUTICALS,INC./RIDGEFIELD-2012-FF-00909FF

PATIENT
  Sex: Female

DRUGS (1)
  1. PRADAXA [Suspect]
     Route: 048

REACTIONS (1)
  - ISCHAEMIC STROKE [None]
